FAERS Safety Report 5918348-8 (Version None)
Quarter: 2008Q4

REPORT INFORMATION
  Report Type: 
  Country: None (occurrence: None)
  Receive Date: 20081010
  Receipt Date: 20080925
  Transmission Date: 20090506
  Serious: Yes (Death)
  Sender: FDA-Public Use
  Company Number: 2008US002555

PATIENT
  Age: 61 Year
  Sex: Female

DRUGS (1)
  1. PROGRAF [Suspect]
     Indication: LUNG TRANSPLANT

REACTIONS (2)
  - GRAFT LOSS [None]
  - LUNG TRANSPLANT REJECTION [None]
